FAERS Safety Report 17126089 (Version 1)
Quarter: 2019Q4

REPORT INFORMATION
  Report Type: Spontaneous
  Country: US (occurrence: US)
  Receive Date: 20191209
  Receipt Date: 20191209
  Transmission Date: 20200122
  Serious: No
  Sender: FDA-Public Use
  Company Number: US-AMGEN-USASP2019202475

PATIENT

DRUGS (2)
  1. EPOGEN [Suspect]
     Active Substance: ERYTHROPOIETIN
     Indication: BLOOD LOSS ANAEMIA
     Dosage: 15000 UNIT, 3 TIMES/WK
     Route: 042
  2. IRON [Concomitant]
     Active Substance: IRON
     Indication: BLOOD LOSS ANAEMIA
     Dosage: UNK
     Route: 042

REACTIONS (1)
  - Off label use [Unknown]
